FAERS Safety Report 20091490 (Version 1)
Quarter: 2021Q4

REPORT INFORMATION
  Report Type: Spontaneous
  Country: US (occurrence: US)
  Receive Date: 20211119
  Receipt Date: 20211119
  Transmission Date: 20220303
  Serious: No
  Sender: FDA-Public Use
  Company Number: US-009507513-2110USA006290

PATIENT
  Age: 72 Year
  Sex: Female

DRUGS (1)
  1. BELSOMRA [Suspect]
     Active Substance: SUVOREXANT
     Indication: Insomnia
     Dosage: 5 MILLIGRAM, UNK
     Route: 048

REACTIONS (2)
  - Drug ineffective [Recovered/Resolved]
  - Agitation [Recovered/Resolved]
